FAERS Safety Report 8906690 (Version 1)
Quarter: 2012Q4

REPORT INFORMATION
  Report Type: 
  Country: US (occurrence: US)
  Receive Date: 20121114
  Receipt Date: 20121114
  Transmission Date: 20130627
  Serious: Yes (Other)
  Sender: FDA-Public Use
  Company Number: US-009507513-1202USA04365

PATIENT

DRUGS (2)
  1. FOSAMAX [Suspect]
     Indication: OSTEOPENIA
     Route: 048
     Dates: start: 1996, end: 2010
  2. FOSAMAX [Suspect]
     Indication: OSTEOPOROSIS

REACTIONS (1)
  - Femur fracture [Unknown]
